FAERS Safety Report 21461554 (Version 2)
Quarter: 2022Q4

REPORT INFORMATION
  Report Type: Spontaneous
  Country: GB (occurrence: GB)
  Receive Date: 20221015
  Receipt Date: 20221027
  Transmission Date: 20230113
  Serious: Yes (Hospitalization)
  Sender: FDA-Public Use
  Company Number: GB-CELLTRION INC.-2022GB016411

PATIENT

DRUGS (1)
  1. INFLIXIMAB [Suspect]
     Active Substance: INFLIXIMAB
     Indication: Colitis ulcerative
     Dosage: 120 MG PRE FILLED PEN
     Route: 058
     Dates: start: 202208

REACTIONS (3)
  - Wound haemorrhage [Unknown]
  - Joint injury [Unknown]
  - Head injury [Unknown]

NARRATIVE: CASE EVENT DATE: 20221001
